FAERS Safety Report 17544668 (Version 6)
Quarter: 2021Q4

REPORT INFORMATION
  Report Type: Spontaneous
  Country: US (occurrence: US)
  Receive Date: 20200316
  Receipt Date: 20211209
  Transmission Date: 20220303
  Serious: Yes (Other)
  Sender: FDA-Public Use
  Company Number: US-PFIZER INC-2020111103

PATIENT
  Age: 70 Year
  Sex: Male
  Weight: 78 kg

DRUGS (7)
  1. PREGABALIN [Interacting]
     Active Substance: PREGABALIN
     Indication: Nerve injury
     Dosage: 100 MG, 2X/DAY
     Dates: start: 201909
  2. PREGABALIN [Interacting]
     Active Substance: PREGABALIN
     Indication: Neuralgia
     Dosage: UNK
     Dates: end: 202003
  3. CANNABIS SATIVA SUBSP. INDICA TOP [Interacting]
     Active Substance: CANNABIS SATIVA SUBSP. INDICA TOP
     Indication: Pain
     Dosage: UNK
  4. CANNABIS SATIVA SUBSP. INDICA TOP [Interacting]
     Active Substance: CANNABIS SATIVA SUBSP. INDICA TOP
     Indication: Sleep disorder
  5. FINASTERIDE [Concomitant]
     Active Substance: FINASTERIDE
     Indication: Alopecia
     Dosage: 5 MG, 1X/DAY
     Dates: start: 2018
  6. TAMSULOSIN [Concomitant]
     Active Substance: TAMSULOSIN
     Indication: Dysuria
     Dosage: 0.4 MG, 1X/DAY
     Dates: start: 2020
  7. ZOLPIDEM TARTRATE [Concomitant]
     Active Substance: ZOLPIDEM TARTRATE
     Indication: Sleep apnoea syndrome
     Dosage: 10 MG, AS NEEDED
     Dates: start: 2017

REACTIONS (6)
  - Seizure [Unknown]
  - Anxiety [Unknown]
  - Drug interaction [Unknown]
  - Drug ineffective [Not Recovered/Not Resolved]
  - Panic attack [Unknown]
  - Loss of personal independence in daily activities [Unknown]

NARRATIVE: CASE EVENT DATE: 20190101
